FAERS Safety Report 5379043-X (Version None)
Quarter: 2007Q3

REPORT INFORMATION
  Report Type: 
  Country: None (occurrence: None)
  Receive Date: 20070702
  Receipt Date: 20070614
  Transmission Date: 20080115
  Serious: Yes (Other)
  Sender: FDA-Public Use
  Company Number: 8024766

PATIENT
  Age: 19 Year
  Sex: Female
  Weight: 66.22 kg

DRUGS (3)
  1. KEPPRA [Suspect]
     Indication: CONVULSION
     Dosage: 750 MG 2/D PO
     Route: 048
     Dates: start: 20030101
  2. KEPPRA [Suspect]
     Indication: CONVULSION
     Dosage: 1000 MG 2/D PO
     Route: 048
     Dates: start: 20070101, end: 20070614
  3. KEPPRA [Suspect]
     Indication: CONVULSION
     Dosage: 2250 MG PO
     Route: 048
     Dates: start: 20070614

REACTIONS (4)
  - ABORTION SPONTANEOUS [None]
  - ANTICONVULSANT DRUG LEVEL BELOW THERAPEUTIC [None]
  - DRUG EXPOSURE DURING PREGNANCY [None]
  - PREGNANCY [None]
